FAERS Safety Report 5094154-4 (Version None)
Quarter: 2006Q3

REPORT INFORMATION
  Report Type: 
  Country: None (occurrence: None)
  Receive Date: 20060831
  Receipt Date: 20060822
  Transmission Date: 20061208
  Serious: Yes (Hospitalization)
  Sender: FDA-Public Use
  Company Number: 2006CG01385

PATIENT
  Age: 32 Year
  Sex: Female
  Weight: 57 kg

DRUGS (3)
  1. MOPRAL [Suspect]
     Route: 048
  2. EFFERALGAN CODEINE [Suspect]
     Route: 048
     Dates: start: 20020101
  3. SUBUTEX [Suspect]
     Route: 048
     Dates: start: 20031215

REACTIONS (4)
  - CONDITION AGGRAVATED [None]
  - GAMMA-GLUTAMYLTRANSFERASE INCREASED [None]
  - HAEMOLYTIC ANAEMIA [None]
  - MACROCYTOSIS [None]
